APPROVED DRUG PRODUCT: REVATIO
Active Ingredient: SILDENAFIL CITRATE
Strength: EQ 10MG BASE/12.5ML (EQ 0.8MG BASE/ML)
Dosage Form/Route: SOLUTION;INTRAVENOUS
Application: N022473 | Product #001 | TE Code: AP
Applicant: VIATRIS SPECIALTY LLC
Approved: Nov 18, 2009 | RLD: Yes | RS: Yes | Type: RX

EXCLUSIVITY:
Code: M-287 | Date: Jan 31, 2026